FAERS Safety Report 5514194-8 (Version None)
Quarter: 2007Q4

REPORT INFORMATION
  Report Type: 
  Country: None (occurrence: None)
  Receive Date: 20071113
  Receipt Date: 20071108
  Transmission Date: 20080405
  Serious: Yes (Death)
  Sender: FDA-Public Use
  Company Number: FR-JNJFOC-20071100818

PATIENT
  Age: 97 Year
  Sex: Female

DRUGS (1)
  1. OFLOXACIN [Suspect]
     Indication: URINARY TRACT INFECTION
     Route: 048
     Dates: start: 20070810, end: 20070814

REACTIONS (2)
  - CARDIAC ARREST [None]
  - DERMATITIS BULLOUS [None]
